FAERS Safety Report 7328627-8 (Version None)
Quarter: 2011Q1

REPORT INFORMATION
  Report Type: 
  Country: None (occurrence: None)
  Receive Date: 20110225
  Receipt Date: 20110225
  Transmission Date: 20110831
  Serious: No
  Sender: FDA-Public Use
  Company Number: None

PATIENT
  Sex: Female

DRUGS (2)
  1. RIBAPAK 600/600MG THREE RIVERS [Suspect]
     Indication: HEPATITIS
     Dosage: 600MG BID PO
     Route: 048
     Dates: start: 20110209
  2. RIBASPHERE [Suspect]
     Indication: HEPATITIS
     Dosage: 200MG PM PO
     Route: 048
     Dates: start: 20110209

REACTIONS (2)
  - BLOOD URINE PRESENT [None]
  - CHROMATURIA [None]
